FAERS Safety Report 7420800-3 (Version None)
Quarter: 2011Q2

REPORT INFORMATION
  Report Type: 
  Country: None (occurrence: None)
  Receive Date: 20110418
  Receipt Date: 20110412
  Transmission Date: 20111010
  Serious: Yes (Death, Hospitalization)
  Sender: FDA-Public Use
  Company Number: US-ROCHE-768309

PATIENT
  Sex: Male
  Weight: 83 kg

DRUGS (19)
  1. FUROSEMIDE [Concomitant]
  2. LORAZEPAM [Concomitant]
  3. POTASSIUM CHLORIDE [Concomitant]
  4. FIBERCON [Concomitant]
  5. ACETAMINOPHEN [Concomitant]
  6. LOVENOX [Concomitant]
  7. ZOFRAN [Concomitant]
  8. CAPECITABINE [Suspect]
     Dosage: REPORETD AS 1500 MG IN AM 2000 MG IN PM, FREQUENCY AS 14 DAYS
     Route: 048
     Dates: start: 20110308, end: 20110321
  9. BENAZEPRIL HYDROCHLORIDE [Concomitant]
  10. METOPROLOL [Concomitant]
  11. AMLODIPINE [Concomitant]
  12. VYTORIN [Concomitant]
  13. OXALIPLATIN [Suspect]
     Route: 042
     Dates: start: 20110308
  14. ZANTAC [Concomitant]
  15. BEVACIZUMAB [Suspect]
     Route: 042
     Dates: start: 20110308
  16. TAMSULOSIN [Concomitant]
  17. OMEPRAZOLE [Concomitant]
     Dosage: DRUG REPORTED AS OMEPRAZOLE
  18. DEXAMETHASONE [Concomitant]
  19. COMPAZINE [Concomitant]

REACTIONS (1)
  - DIVERTICULAR PERFORATION [None]
